FAERS Safety Report 13972281 (Version 1)
Quarter: 2017Q3

REPORT INFORMATION
  Report Type: Spontaneous
  Country: US (occurrence: None)
  Receive Date: 20170914
  Receipt Date: 20170914
  Transmission Date: 20171128
  Serious: No
  Sender: FDA-Public Use
  Company Number: None

PATIENT
  Age: 24 Year
  Sex: Female
  Weight: 60.78 kg

DRUGS (2)
  1. LAMOTRIGINE 25 MG TAB [Suspect]
     Active Substance: LAMOTRIGINE
     Indication: BIPOLAR DISORDER
     Dosage: 25MG 2 TABS BID BY MOUTH
     Route: 048
     Dates: start: 20170730, end: 20170829
  2. LAMOTRIGINE 25 MG TAB [Suspect]
     Active Substance: LAMOTRIGINE
     Indication: MAJOR DEPRESSION
     Dosage: 25MG 2 TABS BID BY MOUTH
     Route: 048
     Dates: start: 20170730, end: 20170829

REACTIONS (2)
  - Pruritus [None]
  - Therapy non-responder [None]

NARRATIVE: CASE EVENT DATE: 20170829
